FAERS Safety Report 11701385 (Version 2)
Quarter: 2015Q4

REPORT INFORMATION
  Report Type: Report from Study
  Country: US (occurrence: US)
  Receive Date: 20151105
  Receipt Date: 20151228
  Transmission Date: 20160304
  Serious: Yes (Hospitalization, Other)
  Sender: FDA-Public Use
  Company Number: US-BAYER-2015-432629

PATIENT
  Age: 61 Year
  Sex: Male

DRUGS (1)
  1. NEXAVAR [Suspect]
     Active Substance: SORAFENIB
     Indication: HEPATIC CANCER
     Dosage: 400 MG, BID
     Route: 048
     Dates: start: 20150915, end: 2015

REACTIONS (9)
  - Proctitis [None]
  - Diarrhoea [None]
  - Ill-defined disorder [None]
  - Haemorrhoids [None]
  - Rectal discharge [None]
  - Anorectal swelling [None]
  - Diarrhoea [None]
  - Abdominal pain upper [None]
  - Blood pressure increased [None]

NARRATIVE: CASE EVENT DATE: 20150925
